FAERS Safety Report 8245548-7 (Version None)
Quarter: 2012Q1

REPORT INFORMATION
  Report Type: 
  Country: None (occurrence: None)
  Receive Date: 20120329
  Receipt Date: 20120322
  Transmission Date: 20120608
  Serious: Yes (Disabling, Other)
  Sender: FDA-Public Use
  Company Number: US-ASTRAZENECA-2012SE19453

PATIENT
  Age: 48 Year
  Sex: Female
  Weight: 89.8 kg

DRUGS (21)
  1. LANTUS [Suspect]
     Indication: DIABETES MELLITUS
     Dosage: 80UNITS IN THE MORNING AND 90 UNITS AT NIGHT
     Route: 065
  2. ISOSORBIDE MONONITRATE [Suspect]
     Indication: CARDIAC DISORDER
     Route: 065
  3. NORVASC [Suspect]
     Indication: CARDIOVASCULAR EVENT PROPHYLAXIS
     Route: 048
  4. UNSPECIFIED MEDICATION [Suspect]
     Indication: DEPRESSION
     Route: 065
  5. DILANTIN [Suspect]
     Indication: CONVULSION
     Route: 048
  6. METHOCARBAMOL [Suspect]
     Indication: NEUROPATHY PERIPHERAL
     Route: 048
  7. POTASSIUM CHLORIDE [Suspect]
     Indication: BLOOD POTASSIUM ABNORMAL
     Route: 065
  8. ASPIRIN [Suspect]
     Indication: CHEST PAIN
     Route: 065
  9. LOMOTIL [Suspect]
     Indication: CROHN'S DISEASE
     Route: 048
  10. ATIVAN [Suspect]
     Indication: NERVOUSNESS
     Route: 048
  11. GENERLAC [Suspect]
     Indication: CROHN'S DISEASE
     Route: 065
  12. ZANTAC [Suspect]
     Indication: GASTROOESOPHAGEAL REFLUX DISEASE
     Route: 065
  13. HUMULIN R [Suspect]
     Indication: DIABETES MELLITUS
     Route: 065
  14. TYLENOL W/ CODEINE [Suspect]
     Indication: MIGRAINE
     Dosage: DAILY
     Route: 065
  15. REMERON [Suspect]
     Indication: INSOMNIA
     Route: 048
  16. DEPAKOTE [Suspect]
     Indication: CONVULSION
     Route: 048
  17. ATENOLOL [Suspect]
     Indication: HYPERTENSION
     Route: 048
  18. FUROSEMIDE [Suspect]
     Indication: DIURETIC THERAPY
     Route: 048
  19. SIMVASTATIN [Suspect]
     Indication: BLOOD CHOLESTEROL INCREASED
     Route: 048
  20. METHOCARBAMOL [Suspect]
     Indication: MUSCLE SPASMS
     Route: 048
  21. NITROSTAT [Suspect]
     Indication: CHEST PAIN
     Route: 065

REACTIONS (4)
  - CHRONIC OBSTRUCTIVE PULMONARY DISEASE [None]
  - EMPHYSEMA [None]
  - BEDRIDDEN [None]
  - AMNESIA [None]
